FAERS Safety Report 7369669-6 (Version None)
Quarter: 2011Q1

REPORT INFORMATION
  Report Type: 
  Country: None (occurrence: None)
  Receive Date: 20110323
  Receipt Date: 20110315
  Transmission Date: 20110831
  Serious: Yes (Hospitalization)
  Sender: FDA-Public Use
  Company Number: BE-BRISTOL-MYERS SQUIBB COMPANY-15180656

PATIENT
  Age: 68 Year
  Sex: Male
  Weight: 57 kg

DRUGS (22)
  1. FRAXODI [Concomitant]
     Dates: start: 20100519
  2. POLYMYCIN B SULFATE [Concomitant]
     Dates: start: 20100520
  3. LYSOMUCIL [Concomitant]
     Dosage: LYSOMUCIL EFFERVESCENT TAB
  4. PEMETREXED DISODIUM [Suspect]
     Indication: HEAD AND NECK CANCER
     Dosage: ON DAY ONE EVERY 21 DAYS.LAST DOSE ON 8JUN2010;INTERR:29JUN10
     Route: 042
     Dates: start: 20100407
  5. MOVIPREP [Concomitant]
     Dates: start: 20100519
  6. MINOCYCLINE HCL [Concomitant]
     Dates: start: 20100519
  7. METRONIDAZOLE [Concomitant]
     Dosage: FORMULATION:CREAM
  8. DEXAMETHASONE [Concomitant]
     Dates: start: 20100503, end: 20100508
  9. LAXOBERON [Concomitant]
     Dates: start: 20100506
  10. CETUXIMAB [Suspect]
     Indication: HEAD AND NECK CANCER
     Dosage: 1DAY 1CYCLE ONE ONLY.RECEIVED LAST DOSE:22JUN2010.SUBSEQUENT DOSE:250MG/M2 WEEKLY IV;INTERR:29JUN10
     Route: 042
     Dates: start: 20100407
  11. CISPLATIN [Suspect]
     Indication: HEAD AND NECK CANCER
     Dosage: ON DAY 1 EVERY 21 DAYS,LAST DOSE ON 8JUN2010;INTERR:29JUN10
     Route: 042
     Dates: start: 20100407
  12. DAFALGAN [Concomitant]
  13. DUOVENT [Concomitant]
     Route: 055
  14. FOLAVIT [Concomitant]
     Dates: start: 20100423
  15. OMEPRAZOLE [Concomitant]
  16. MOTILIUM [Concomitant]
     Dates: start: 20100529
  17. PRIMPERAN TAB [Concomitant]
  18. NEUROBION [Concomitant]
     Dates: start: 20100508
  19. TERRAMYCIN V CAP [Concomitant]
     Dates: start: 20100520
  20. CHLORHEXIDINE GLUCONATE [Concomitant]
  21. IMODIUM [Concomitant]
  22. ZANTAC [Concomitant]
     Dosage: EFFERVESCENT TAB

REACTIONS (2)
  - WEIGHT DECREASED [None]
  - BLOOD CREATININE INCREASED [None]
